FAERS Safety Report 14686636 (Version 4)
Quarter: 2019Q3

REPORT INFORMATION
  Report Type: Report from Study
  Country: FR (occurrence: FR)
  Receive Date: 20180327
  Receipt Date: 20190930
  Transmission Date: 20191004
  Serious: Yes (Hospitalization)
  Sender: FDA-Public Use
  Company Number: FR-SA-2018SA078040

PATIENT
  Age: 59 Year
  Sex: Male
  Weight: 73 kg

DRUGS (8)
  1. AFLIBERCEPT [Suspect]
     Active Substance: AFLIBERCEPT
     Dosage: UNK UNK,QCY
     Route: 042
     Dates: start: 20180109, end: 20180109
  2. IRINOTECAN [Suspect]
     Active Substance: IRINOTECAN
     Dosage: UNK UNK,QCY
     Route: 042
     Dates: start: 20180109, end: 20180109
  3. FLUOROURACIL. [Suspect]
     Active Substance: FLUOROURACIL
     Dosage: UNK UNK,QCY
     Route: 042
     Dates: start: 20180109, end: 20180109
  4. FOLINIC ACID [Suspect]
     Active Substance: LEUCOVORIN
     Dosage: UNK UNK,QCY
     Route: 042
     Dates: start: 20180109, end: 20180109
  5. AFLIBERCEPT [Suspect]
     Active Substance: AFLIBERCEPT
     Indication: COLORECTAL CANCER METASTATIC
     Dosage: UNK UNK,QCY
     Route: 042
  6. FLUOROURACIL. [Suspect]
     Active Substance: FLUOROURACIL
     Indication: COLORECTAL CANCER METASTATIC
     Dosage: UNK UNK,QCY
     Route: 042
  7. IRINOTECAN [Suspect]
     Active Substance: IRINOTECAN
     Indication: COLORECTAL CANCER METASTATIC
     Dosage: UNK UNK,QCY
     Route: 042
  8. FOLINIC ACID [Suspect]
     Active Substance: LEUCOVORIN
     Indication: COLORECTAL CANCER METASTATIC
     Dosage: UNK UNK,QCY
     Route: 042

REACTIONS (1)
  - General physical health deterioration [Not Recovered/Not Resolved]

NARRATIVE: CASE EVENT DATE: 20180306
